FAERS Safety Report 11682964 (Version 2)
Quarter: 2015Q4

REPORT INFORMATION
  Report Type: Report from Study
  Country: HR (occurrence: HR)
  Receive Date: 20151029
  Receipt Date: 20151123
  Transmission Date: 20160304
  Serious: Yes (Other)
  Sender: FDA-Public Use
  Company Number: HR-ASTELLAS-2015US039853

PATIENT

DRUGS (7)
  1. TACROLIMUS. [Suspect]
     Active Substance: TACROLIMUS
     Indication: RENAL TRANSPLANT
     Dosage: 4.5 MG, DAILY DOSE
     Route: 065
     Dates: start: 20140204
  2. CONTROLOC                          /01263201/ [Concomitant]
     Indication: PROPHYLAXIS
     Dosage: 40 MG, DAILY DOSE
     Route: 048
     Dates: start: 2013
  3. RAMIPRIL. [Concomitant]
     Active Substance: RAMIPRIL
     Indication: HYPERTENSION
     Dosage: 3.75 MG, DAILY DOSE
     Route: 048
     Dates: start: 2014
  4. DECORTIN [Suspect]
     Active Substance: PREDNISONE
     Indication: RENAL TRANSPLANT
     Dosage: 10 MG, DAILY DOSE
     Route: 048
     Dates: start: 20130223
  5. DECORTIN [Suspect]
     Active Substance: PREDNISONE
     Dosage: UNK, UNKNOWN FREQ.
     Route: 048
  6. MYFORTIC [Suspect]
     Active Substance: MYCOPHENOLATE SODIUM
     Indication: RENAL TRANSPLANT
     Route: 065
     Dates: start: 20130223
  7. LESCOL XL [Concomitant]
     Active Substance: FLUVASTATIN SODIUM
     Indication: HYPERLIPIDAEMIA
     Dosage: 80 MG, DAILY DOSE
     Route: 048
     Dates: start: 2013

REACTIONS (1)
  - Cataract [Not Recovered/Not Resolved]

NARRATIVE: CASE EVENT DATE: 20150428
